FAERS Safety Report 10381356 (Version 1)
Quarter: 2014Q3

REPORT INFORMATION
  Report Type: Spontaneous
  Country: GB (occurrence: None)
  Receive Date: 20140811
  Receipt Date: 20140811
  Transmission Date: 20150326
  Serious: Yes (Hospitalization, Other)
  Sender: FDA-Public Use
  Company Number: 2014AP003832

PATIENT
  Age: 78 Year
  Sex: Female
  Weight: 93.2 kg

DRUGS (5)
  1. SERETIDE [Concomitant]
     Active Substance: FLUTICASONE FUROATE\SALMETEROL XINAFOATE
  2. LISINOPRIL. [Concomitant]
     Active Substance: LISINOPRIL
  3. TIOTROPIUM BROMIDE [Concomitant]
     Active Substance: TIOTROPIUM BROMIDE
  4. MONTELUKAST [Suspect]
     Active Substance: MONTELUKAST SODIUM
     Indication: PRODUCT USED FOR UNKNOWN INDICATION
     Route: 048
     Dates: start: 20080101, end: 20140710
  5. SALBUTAMOL [Concomitant]
     Active Substance: ALBUTEROL

REACTIONS (5)
  - Muscular weakness [None]
  - Lower respiratory tract infection [None]
  - Allergic granulomatous angiitis [None]
  - Fall [None]
  - Paraesthesia [None]

NARRATIVE: CASE EVENT DATE: 20140621
